FAERS Safety Report 22023231 (Version 1)
Quarter: 2023Q1

REPORT INFORMATION
  Report Type: Spontaneous
  Country: US (occurrence: US)
  Receive Date: 20230223
  Receipt Date: 20230223
  Transmission Date: 20230417
  Serious: No
  Sender: FDA-Public Use
  Company Number: US-LEO Pharma-349463

PATIENT
  Age: 88 Year
  Sex: Male

DRUGS (1)
  1. ENSTILAR [Suspect]
     Active Substance: BETAMETHASONE DIPROPIONATE\CALCIPOTRIENE HYDRATE
     Indication: Product used for unknown indication
     Dosage: USING 2X DAILY

REACTIONS (2)
  - COVID-19 [Not Recovered/Not Resolved]
  - Dermatitis [Not Recovered/Not Resolved]
